FAERS Safety Report 5193158-0 (Version None)
Quarter: 2006Q4

REPORT INFORMATION
  Report Type: 
  Country: None (occurrence: None)
  Receive Date: 20061228
  Receipt Date: 20060605
  Transmission Date: 20070319
  Serious: No
  Sender: FDA-Public Use
  Company Number: US-GLAXOSMITHKLINE-A0608084A

PATIENT
  Age: 65 Year
  Sex: Male

DRUGS (5)
  1. AVODART [Suspect]
     Indication: BENIGN PROSTATIC HYPERPLASIA
     Dosage: .5MG PER DAY
     Route: 048
     Dates: start: 20060301, end: 20060530
  2. FLECAINIDE ACETATE [Concomitant]
  3. ASPIRIN [Concomitant]
  4. TERAZOSIN HCL [Concomitant]
  5. TYLENOL [Concomitant]

REACTIONS (1)
  - HEADACHE [None]
